FAERS Safety Report 16541763 (Version 1)
Quarter: 2019Q3

REPORT INFORMATION
  Report Type: Report from Study
  Country: US (occurrence: US)
  Receive Date: 20190708
  Receipt Date: 20190708
  Transmission Date: 20191004
  Serious: Yes (Hospitalization)
  Sender: FDA-Public Use
  Company Number: US-BRISTOL-MYERS SQUIBB COMPANY-BMS-2019-065414

PATIENT
  Age: 62 Year
  Sex: Male
  Weight: 82.6 kg

DRUGS (2)
  1. IPILIMUMAB [Suspect]
     Active Substance: IPILIMUMAB
     Indication: ADRENOCORTICAL CARCINOMA
     Dosage: 82.6 MILLIGRAM, Q3WK
     Route: 042
     Dates: start: 20190522, end: 20190612
  2. NIVOLUMAB [Suspect]
     Active Substance: NIVOLUMAB
     Indication: ADRENOCORTICAL CARCINOMA
     Dosage: 248 MILLIGRAM, Q3WK
     Route: 042
     Dates: start: 20190522, end: 20190621

REACTIONS (4)
  - Pyrexia [Unknown]
  - Alanine aminotransferase increased [Unknown]
  - Arthralgia [Recovered/Resolved]
  - Swelling [Unknown]

NARRATIVE: CASE EVENT DATE: 20190626
